FAERS Safety Report 13083972 (Version 2)
Quarter: 2017Q1

REPORT INFORMATION
  Report Type: Report from Study
  Country: US (occurrence: US)
  Receive Date: 20170104
  Receipt Date: 20170109
  Transmission Date: 20170428
  Serious: Yes (Life-Threatening)
  Sender: FDA-Public Use
  Company Number: US-ROCHE-1874830

PATIENT
  Age: 37 Year
  Sex: Female
  Weight: 79.9 kg

DRUGS (16)
  1. TIOTROPIUM BROMIDE [Concomitant]
     Active Substance: TIOTROPIUM BROMIDE
     Dosage: 5 MCG BY INHALATION EVERY MORNING
     Route: 065
  2. ASTELIN (UNITED STATES) [Concomitant]
     Dosage: AEROSOL, SPRAY. 1 SPRAY OF NASAL ROUTE DAILY 2 TIMES DAILY
     Route: 045
  3. WARFARIN [Concomitant]
     Active Substance: WARFARIN
     Dosage: 1 TABLET EVERY EVENING
     Route: 048
  4. WARFARIN [Concomitant]
     Active Substance: WARFARIN
     Dosage: 1 TAB BY MOUTH EVERDAY
     Route: 048
  5. XOLAIR [Suspect]
     Active Substance: OMALIZUMAB
     Indication: ASTHMA
     Route: 058
     Dates: start: 20161221
  6. PANTOPRAZOLE [Concomitant]
     Active Substance: PANTOPRAZOLE SODIUM
     Dosage: 1 TAB BY MOUTH EVERYDAY, DELAYED RELEASE
     Route: 048
  7. SERTRALINE [Concomitant]
     Active Substance: SERTRALINE HYDROCHLORIDE
     Dosage: 2 TABS BY MOUTH EVERY DAY
     Route: 048
  8. TOPIRAMATE. [Concomitant]
     Active Substance: TOPIRAMATE
     Dosage: 1 TAB BY MOUTH TWICE DAILY
     Route: 048
  9. SALINE [Concomitant]
     Active Substance: SODIUM CHLORIDE
     Indication: ANAPHYLACTIC REACTION
     Dosage: FLUSHING 1000CC BEFORE TREATMENT GIVEN
     Route: 042
     Dates: start: 20161221
  10. FLUTICASONE/SALMETEROL [Concomitant]
     Active Substance: FLUTICASONE PROPIONATE\SALMETEROL XINAFOATE
     Dosage: 230-21 MCG. 2 PUFFS BY INHALATION 2 TIMES DAILY
     Route: 065
  11. EPINEPHRINE. [Concomitant]
     Active Substance: EPINEPHRINE
     Route: 030
  12. HYDROXYZINE PAMOATE. [Concomitant]
     Active Substance: HYDROXYZINE PAMOATE
     Dosage: 1 CAP BY MOUTH EVERY 8 HOURS AS REQUIRED
     Route: 048
  13. NADOLOL. [Concomitant]
     Active Substance: NADOLOL
     Route: 048
  14. FLECAINIDE [Concomitant]
     Active Substance: FLECAINIDE
     Route: 048
  15. LEVALBUTEROL TARTRATE. [Concomitant]
     Active Substance: LEVALBUTEROL TARTRATE
     Dosage: 2 PUFFS BY INHALATION EVERY 6 HOURS
     Route: 065
  16. BENZAMYCIN [Concomitant]
     Active Substance: BENZOYL PEROXIDE\ERYTHROMYCIN
     Dosage: 3-T5 %. 1 APPLICATION BY TOPICAL ROUTE 2 TIMES DAILY
     Route: 061

REACTIONS (1)
  - Anaphylactic reaction [Recovered/Resolved]

NARRATIVE: CASE EVENT DATE: 20161221
